FAERS Safety Report 12374868 (Version 1)
Quarter: 2016Q2

REPORT INFORMATION
  Report Type: Spontaneous
  Country: US (occurrence: None)
  Receive Date: 20160516
  Receipt Date: 20160516
  Transmission Date: 20160815
  Serious: Yes (Hospitalization)
  Sender: FDA-Public Use
  Company Number: None

PATIENT
  Age: 61 Year
  Sex: Female
  Weight: 63.05 kg

DRUGS (3)
  1. CIPROFLOXACIN, 250 MG [Suspect]
     Active Substance: CIPROFLOXACIN
     Indication: DEVICE RELATED INFECTION
     Route: 048
  2. CIPROFLOXACIN, 250 MG [Suspect]
     Active Substance: CIPROFLOXACIN
     Indication: POST PROCEDURAL INFECTION
     Route: 048
  3. ARMOUR THYROID [Concomitant]
     Active Substance: THYROID, PORCINE

REACTIONS (1)
  - Fascial rupture [None]

NARRATIVE: CASE EVENT DATE: 20160224
